FAERS Safety Report 6533297-2 (Version None)
Quarter: 2010Q1

REPORT INFORMATION
  Report Type: 
  Country: None (occurrence: None)
  Receive Date: 20100111
  Receipt Date: 20100104
  Transmission Date: 20100710
  Serious: Yes (Hospitalization)
  Sender: FDA-Public Use
  Company Number: DE-MERCK-1001DEU00003

PATIENT
  Age: 60 Year
  Sex: Male
  Weight: 58 kg

DRUGS (5)
  1. PROSCAR [Suspect]
     Indication: ALOPECIA
     Route: 048
     Dates: end: 20091026
  2. ATORVASTATIN CALCIUM [Suspect]
     Indication: HYPERCHOLESTEROLAEMIA
     Route: 048
     Dates: start: 20090319, end: 20091026
  3. ST JOHNS WORT [Suspect]
     Indication: MOOD ALTERED
     Route: 048
     Dates: start: 20091005, end: 20091105
  4. ST JOHNS WORT [Suspect]
     Route: 048
     Dates: start: 20091005, end: 20091026
  5. GENERAL ANESTHESIA (UNSPECIFIED) [Concomitant]
     Indication: INGUINAL HERNIA REPAIR
     Route: 065
     Dates: start: 20090930, end: 20090930

REACTIONS (4)
  - DRUG INTERACTION [None]
  - HEPATITIS [None]
  - INGUINAL HERNIA [None]
  - WRONG TECHNIQUE IN DRUG USAGE PROCESS [None]
